FAERS Safety Report 9167898 (Version 1)
Quarter: 2013Q1

REPORT INFORMATION
  Report Type: Spontaneous
  Country: US (occurrence: US)
  Receive Date: 20130318
  Receipt Date: 20130318
  Transmission Date: 20140127
  Serious: No
  Sender: FDA-Public Use
  Company Number: US-PFIZER INC-2013085346

PATIENT
  Age: 81 Year
  Sex: Male
  Weight: 73.47 kg

DRUGS (2)
  1. GLIPIZIDE [Suspect]
     Indication: BLOOD GLUCOSE ABNORMAL
     Dosage: 10 MG, 1X/DAY
  2. METFORMIN HYDROCHLORIDE [Concomitant]
     Indication: BLOOD GLUCOSE INCREASED
     Dosage: 500 MG, 2X/DAY

REACTIONS (1)
  - Drug ineffective [Unknown]
